FAERS Safety Report 4653257-6 (Version None)
Quarter: 2005Q2

REPORT INFORMATION
  Report Type: 
  Country: None (occurrence: None)
  Receive Date: 20050503
  Receipt Date: 20050428
  Transmission Date: 20051028
  Serious: Yes (Death)
  Sender: FDA-Public Use
  Company Number: TCI2005A02225

PATIENT
  Age: 49 Year
  Sex: Female

DRUGS (2)
  1. LEUPROLIDE ACETATE [Suspect]
     Indication: UTERINE LEIOMYOMA
     Dosage: SEE IMAGE
     Route: 058
     Dates: start: 20041108, end: 20050322
  2. LEUPROLIDE ACETATE [Suspect]
     Indication: UTERINE LEIOMYOMA
     Dosage: SEE IMAGE
     Route: 058
     Dates: start: 20000101

REACTIONS (1)
  - DEATH [None]
